FAERS Safety Report 15073482 (Version 3)
Quarter: 2019Q2

REPORT INFORMATION
  Report Type: Spontaneous
  Country: US (occurrence: US)
  Receive Date: 20180627
  Receipt Date: 20190531
  Transmission Date: 20190711
  Serious: Yes (Death)
  Sender: FDA-Public Use
  Company Number: US-PFIZER INC-2018259731

PATIENT
  Age: 71 Year
  Sex: Female
  Weight: 65 kg

DRUGS (4)
  1. IBRANCE [Suspect]
     Active Substance: PALBOCICLIB
     Indication: BREAST CANCER STAGE IV
     Dosage: 20 MG, 1X/DAY 3 WEEKS ON 1 WEEK OFF
     Dates: start: 201802, end: 201901
  2. IBRANCE [Suspect]
     Active Substance: PALBOCICLIB
     Indication: BREAST CANCER METASTATIC
     Dosage: 20 MG, CYCLIC (3 WEEKS ON 1 WEEK OFF)
     Dates: start: 201802
  3. ARIMIDEX [Concomitant]
     Active Substance: ANASTROZOLE
     Dosage: UNK
     Dates: start: 201702, end: 201901
  4. ARIMIDEX [Concomitant]
     Active Substance: ANASTROZOLE
     Dosage: UNK
     Dates: start: 201702

REACTIONS (8)
  - Skin lesion [Recovering/Resolving]
  - Nasal disorder [Recovering/Resolving]
  - Alopecia [Unknown]
  - Pleural effusion [Not Recovered/Not Resolved]
  - Aphthous ulcer [Unknown]
  - Cheilitis [Recovering/Resolving]
  - White blood cell count decreased [Recovering/Resolving]
  - Neoplasm progression [Fatal]

NARRATIVE: CASE EVENT DATE: 201802
